FAERS Safety Report 17305154 (Version 1)
Quarter: 2020Q1

REPORT INFORMATION
  Report Type: Spontaneous
  Country: FR (occurrence: FR)
  Receive Date: 20200122
  Receipt Date: 20200122
  Transmission Date: 20200409
  Serious: Yes (Hospitalization)
  Sender: FDA-Public Use
  Company Number: FR-TEVA-2020-FR-1171475

PATIENT
  Age: 38 Year
  Sex: Female

DRUGS (4)
  1. TRAMADOL BASE [Suspect]
     Active Substance: TRAMADOL
     Indication: BACK PAIN
     Dosage: 600 MG 1 DAYS
     Route: 048
  2. CHLORHYDRATE DE NALTREXONE [Interacting]
     Active Substance: NALTREXONE
     Indication: PRODUCT USED FOR UNKNOWN INDICATION
     Dosage: 100 MG 1 DAYS
     Route: 048
     Dates: start: 20191203, end: 20191203
  3. IZALGI 500 MG/25 MG, G?LULE [Interacting]
     Active Substance: ACETAMINOPHEN\OPIUM
     Indication: BACK PAIN
     Dosage: 1 DOSAGE FORMS 1 AS REQUIRED
     Route: 048
  4. DAFALGAN CODEINE [Interacting]
     Active Substance: ACETAMINOPHEN\CODEINE PHOSPHATE
     Indication: BACK PAIN
     Dosage: 8 DOSAGE FORMS 1 DAYS
     Route: 048

REACTIONS (3)
  - Withdrawal syndrome [Recovered/Resolved]
  - Contraindicated product administered [Recovered/Resolved]
  - Drug interaction [Recovered/Resolved]

NARRATIVE: CASE EVENT DATE: 20191203
